FAERS Safety Report 6029485-4 (Version None)
Quarter: 2009Q1

REPORT INFORMATION
  Report Type: 
  Country: None (occurrence: None)
  Receive Date: 20090105
  Receipt Date: 20090105
  Transmission Date: 20090719
  Serious: Yes (Life-Threatening, Disabling)
  Sender: FDA-Public Use
  Company Number: None

PATIENT
  Sex: Male
  Weight: 106.1417 kg

DRUGS (12)
  1. LAMOTRIGINE [Suspect]
     Indication: DEPRESSION
     Dosage: 150MG BID PO
     Route: 048
     Dates: start: 20081110, end: 20081213
  2. ANDROGEL [Concomitant]
  3. SYNTHROID [Concomitant]
  4. PROVIGIL [Concomitant]
  5. KEPPRA [Concomitant]
  6. CLONAZEPAM [Concomitant]
  7. LEXAPRO [Concomitant]
  8. SINGULAIR [Concomitant]
  9. SONATA [Concomitant]
  10. CYCLOBENZAPRINE HCL [Concomitant]
  11. MAXALT [Concomitant]
  12. FIORINAL W/CODEINE [Concomitant]

REACTIONS (12)
  - DEPRESSION [None]
  - DRUG WITHDRAWAL SYNDROME [None]
  - FALL [None]
  - GAIT DISTURBANCE [None]
  - HEADACHE [None]
  - HYPERSOMNIA [None]
  - IMPAIRED DRIVING ABILITY [None]
  - INJURY [None]
  - INSOMNIA [None]
  - MIGRAINE [None]
  - PRODUCT QUALITY ISSUE [None]
  - SOMNOLENCE [None]
